FAERS Safety Report 7802912-5 (Version None)
Quarter: 2011Q4

REPORT INFORMATION
  Report Type: 
  Country: None (occurrence: None)
  Receive Date: 20111007
  Receipt Date: 20110930
  Transmission Date: 20120403
  Serious: Yes (Hospitalization, Other)
  Sender: FDA-Public Use
  Company Number: BE-VERTEX PHARMACEUTICALS INC.-AE-2011-001294

PATIENT
  Sex: Female
  Weight: 69 kg

DRUGS (9)
  1. RIBAVIRIN [Suspect]
     Route: 048
     Dates: start: 20110811, end: 20110827
  2. ACETAMINOPHEN [Concomitant]
     Dates: start: 20110806
  3. RIBAVIRIN [Suspect]
     Route: 048
     Dates: start: 20110804, end: 20110810
  4. XYZAL [Concomitant]
     Indication: RASH
     Dates: start: 20110804
  5. PEGINTERFERON ALFA-2A [Suspect]
     Route: 058
     Dates: start: 20110718, end: 20110810
  6. RIBAVIRIN [Suspect]
     Indication: HEPATITIS C
     Route: 048
     Dates: start: 20110518, end: 20110717
  7. VX-950 [Suspect]
     Indication: HEPATITIS C
     Route: 048
     Dates: start: 20110518, end: 20110810
  8. PEGINTERFERON ALFA-2A [Suspect]
     Indication: HEPATITIS C
     Route: 058
     Dates: start: 20110518, end: 20110717
  9. PEGINTERFERON ALFA-2A [Suspect]
     Route: 058
     Dates: start: 20110811, end: 20110827

REACTIONS (2)
  - RASH [None]
  - HYPERSENSITIVITY [None]
